FAERS Safety Report 7476862-0 (Version None)
Quarter: 2011Q2

REPORT INFORMATION
  Report Type: 
  Country: None (occurrence: None)
  Receive Date: 20110512
  Receipt Date: 20091011
  Transmission Date: 20111010
  Serious: Yes (Other)
  Sender: FDA-Public Use
  Company Number: US-BAYER-200936266NA

PATIENT
  Sex: Male
  Weight: 83.9 kg

DRUGS (8)
  1. EPINEPHRINE [Concomitant]
     Dosage: UNK
     Route: 042
     Dates: start: 20041101
  2. TRASYLOL [Suspect]
     Indication: CORONARY ARTERY BYPASS
     Dosage: INFUSION AT 50 ML/HOUR
     Route: 042
     Dates: start: 20041101, end: 20041101
  3. LIPITOR [Concomitant]
     Dosage: 40MG
     Route: 048
     Dates: start: 20041023
  4. ANCEF [Concomitant]
     Dosage: 1GM
     Dates: start: 20041101
  5. DIOVAN [Concomitant]
     Dosage: 160MG
     Route: 048
  6. LISINOPRIL [Concomitant]
     Route: 048
  7. TRASYLOL [Suspect]
     Indication: ENDARTERECTOMY
  8. ATENOLOL [Concomitant]
     Dosage: 25MG
     Route: 048
     Dates: start: 20041023

REACTIONS (8)
  - PAIN [None]
  - DEPRESSION [None]
  - ANXIETY [None]
  - RENAL FAILURE [None]
  - ANHEDONIA [None]
  - FEAR [None]
  - INJURY [None]
  - UNEVALUABLE EVENT [None]
